FAERS Safety Report 14531305 (Version 1)
Quarter: 2018Q1

REPORT INFORMATION
  Report Type: Other
  Country: DE (occurrence: DE)
  Receive Date: 20180214
  Receipt Date: 20180214
  Transmission Date: 20180509
  Serious: Yes (Other)
  Sender: FDA-Public Use
  Company Number: DE-LUPIN PHARMACEUTICALS INC.-2018-00295

PATIENT
  Age: 38 Year
  Sex: Male

DRUGS (9)
  1. PAROXETINE. [Suspect]
     Active Substance: PAROXETINE
     Dosage: 30 MG, QD
     Route: 048
     Dates: start: 20170530, end: 20170603
  2. PAROXETINE. [Suspect]
     Active Substance: PAROXETINE
     Dosage: 60 MG, QD
     Route: 065
     Dates: start: 20170504, end: 20170516
  3. PAROXETINE. [Suspect]
     Active Substance: PAROXETINE
     Dosage: 10 MG, QD
     Route: 048
     Dates: start: 20170610, end: 20170617
  4. PAROXETINE. [Suspect]
     Active Substance: PAROXETINE
     Dosage: 40 MG, QD
     Route: 048
     Dates: start: 20170526, end: 20170529
  5. PAROXETINE. [Suspect]
     Active Substance: PAROXETINE
     Indication: PRODUCT USED FOR UNKNOWN INDICATION
     Dosage: 50 MG, QD
     Route: 048
     Dates: start: 20170412, end: 20170419
  6. PAROXETINE. [Suspect]
     Active Substance: PAROXETINE
     Dosage: 60 MG, QD
     Route: 048
     Dates: start: 20170420, end: 20170424
  7. PAROXETINE. [Suspect]
     Active Substance: PAROXETINE
     Dosage: 70 MG, QD
     Route: 048
     Dates: start: 20170425, end: 20170503
  8. PAROXETINE. [Suspect]
     Active Substance: PAROXETINE
     Dosage: 50 MG, QD
     Route: 048
     Dates: start: 20170517, end: 20170525
  9. PAROXETINE. [Suspect]
     Active Substance: PAROXETINE
     Dosage: 20 MG, QD
     Route: 048
     Dates: start: 20170604, end: 20170609

REACTIONS (1)
  - Ejaculation disorder [Recovered/Resolved]

NARRATIVE: CASE EVENT DATE: 20170426
